FAERS Safety Report 23271776 (Version 4)
Quarter: 2024Q1

REPORT INFORMATION
  Report Type: Spontaneous
  Country: CA (occurrence: CA)
  Receive Date: 20231207
  Receipt Date: 20240216
  Transmission Date: 20240410
  Serious: Yes (Other)
  Sender: FDA-Public Use
  Company Number: CA-PFIZER INC-202300427504

PATIENT
  Age: 4 Year
  Sex: Female
  Weight: 16 kg

DRUGS (3)
  1. METHOTREXATE SODIUM [Suspect]
     Active Substance: METHOTREXATE SODIUM
     Indication: Uveitis
     Dosage: 1 DF, WEEKLY X9 MONTHS
     Route: 058
  2. ABRILADA [Concomitant]
     Active Substance: ADALIMUMAB-AFZB
     Indication: Uveitis
     Dosage: 20 MG, EVERY 2 WEEKS
     Route: 058
     Dates: start: 20240112
  3. PREDNISONE [Concomitant]
     Active Substance: PREDNISONE
     Dosage: UNK X 10DAYS
     Route: 048
     Dates: start: 20231105

REACTIONS (14)
  - Cataract [Unknown]
  - Blindness [Unknown]
  - Intraocular pressure increased [Unknown]
  - Post procedural complication [Unknown]
  - Off label use [Unknown]
  - Eye swelling [Unknown]
  - Illness [Unknown]
  - Middle insomnia [Unknown]
  - Fatigue [Unknown]
  - Irritability [Unknown]
  - Pollakiuria [Unknown]
  - Screaming [Unknown]
  - Posturing [Unknown]
  - Back pain [Unknown]

NARRATIVE: CASE EVENT DATE: 20230101
